FAERS Safety Report 13177450 (Version 1)
Quarter: 2017Q1

REPORT INFORMATION
  Report Type: Report from Study
  Country: US (occurrence: US)
  Receive Date: 20170201
  Receipt Date: 20170201
  Transmission Date: 20170428
  Serious: No
  Sender: FDA-Public Use
  Company Number: US-EXELIXIS-CABO-16006325

PATIENT
  Sex: Male
  Weight: 64.9 kg

DRUGS (7)
  1. TYLENOL [Concomitant]
     Active Substance: ACETAMINOPHEN
  2. COMETRIQ [Suspect]
     Active Substance: CABOZANTINIB S-MALATE
     Indication: RENAL CANCER
     Dosage: 60 MG, QD
     Route: 048
     Dates: start: 20160414, end: 201605
  3. FENTANYL. [Concomitant]
     Active Substance: FENTANYL
  4. METOPROLOL. [Concomitant]
     Active Substance: METOPROLOL
  5. CORDRAN [Concomitant]
     Active Substance: FLURANDRENOLIDE
  6. ZANTAC [Concomitant]
     Active Substance: RANITIDINE HYDROCHLORIDE
  7. XGEVA [Concomitant]
     Active Substance: DENOSUMAB

REACTIONS (6)
  - Off label use [Unknown]
  - Night sweats [Unknown]
  - Feeling cold [Unknown]
  - Feeling hot [Unknown]
  - Cheilitis [Unknown]
  - Fatigue [Unknown]
